FAERS Safety Report 4387683-X (Version None)
Quarter: 2004Q2

REPORT INFORMATION
  Report Type: 
  Country: None (occurrence: None)
  Receive Date: 20040629
  Receipt Date: 20040629
  Transmission Date: 20050107
  Serious: Yes (Hospitalization)
  Sender: FDA-Public Use
  Company Number: None

PATIENT
  Age: 79 Year
  Sex: Male

DRUGS (15)
  1. DIGOXIN [Suspect]
     Indication: CARDIAC FAILURE CONGESTIVE
  2. PLAVIX [Concomitant]
  3. LOPRESSOR [Concomitant]
  4. COMBIVENT [Concomitant]
  5. PREVACID [Concomitant]
  6. LASIX [Concomitant]
  7. APRESOLINE [Concomitant]
  8. ECOTRIN [Concomitant]
  9. SYNTHROID [Concomitant]
  10. HYTRIN [Concomitant]
  11. IMDUR [Concomitant]
  12. CAPOTEN [Concomitant]
  13. AVAPRO [Concomitant]
  14. ALDACTONE [Concomitant]
  15. HUMULIN 70/30 [Concomitant]

REACTIONS (4)
  - BLOOD PRESSURE DECREASED [None]
  - CARDIOACTIVE DRUG LEVEL INCREASED [None]
  - DIZZINESS [None]
  - FALL [None]
